FAERS Safety Report 11200731 (Version 1)
Quarter: 2015Q2

REPORT INFORMATION
  Report Type: Spontaneous
  Country: US (occurrence: US)
  Receive Date: 20150618
  Receipt Date: 20150618
  Transmission Date: 20150821
  Serious: Yes (Hospitalization)
  Sender: FDA-Public Use
  Company Number: PHHY2015US071689

PATIENT
  Age: 16 Year
  Sex: Male

DRUGS (4)
  1. DEXTROMETHORPHAN [Suspect]
     Active Substance: DEXTROMETHORPHAN
     Indication: PRODUCT USED FOR UNKNOWN INDICATION
     Route: 065
  2. MIDAZOLAM [Suspect]
     Active Substance: MIDAZOLAM\MIDAZOLAM HYDROCHLORIDE
     Indication: SEROTONIN SYNDROME
     Dosage: 0.3 MG/KG/H
     Route: 065
  3. CHLORPHENIRAMINE [Suspect]
     Active Substance: CHLORPHENIRAMINE
     Indication: PRODUCT USED FOR UNKNOWN INDICATION
     Route: 065
  4. METHADONE [Suspect]
     Active Substance: METHADONE HYDROCHLORIDE
     Indication: PRODUCT USED FOR UNKNOWN INDICATION
     Route: 065

REACTIONS (10)
  - Serotonin syndrome [Recovering/Resolving]
  - Tachycardia [Recovering/Resolving]
  - Hyperthermia [Recovering/Resolving]
  - Suicide attempt [Unknown]
  - Drug ineffective [Unknown]
  - Mental status changes [Recovering/Resolving]
  - Respiratory rate decreased [Recovering/Resolving]
  - Myoclonus [Recovering/Resolving]
  - Rhabdomyolysis [Recovering/Resolving]
  - Drug abuse [Recovering/Resolving]
